FAERS Safety Report 14615228 (Version 1)
Quarter: 2018Q1

REPORT INFORMATION
  Report Type: Spontaneous
  Country: US (occurrence: US)
  Receive Date: 20180308
  Receipt Date: 20180308
  Transmission Date: 20180509
  Serious: Yes (Other)
  Sender: FDA-Public Use
  Company Number: PHHY2018US032775

PATIENT
  Age: 41 Year
  Sex: Male

DRUGS (5)
  1. ALDESLEUKIN [Suspect]
     Active Substance: ALDESLEUKIN
     Dosage: 600000 IU/M2, Q8H FOR A MAXIMUM OF 14 DOSES ON  DAYS 284,298 AND 368 POST-T CELL INFUSION)
     Route: 042
  2. FLUDARABINE [Suspect]
     Active Substance: FLUDARABINE PHOSPHATE
     Indication: METASTATIC MALIGNANT MELANOMA
     Dosage: 25 MG/M2, UNK
     Route: 065
  3. CYCLOPHOSPHAMIDE. [Suspect]
     Active Substance: CYCLOPHOSPHAMIDE
     Indication: METASTATIC MALIGNANT MELANOMA
     Dosage: 60 MG/KG, UNK
     Route: 065
  4. ALDESLEUKIN [Suspect]
     Active Substance: ALDESLEUKIN
     Indication: METASTATIC MALIGNANT MELANOMA
     Dosage: 72000 IU/KG, TID
     Route: 042
  5. PEMBROLIZUMAB. [Suspect]
     Active Substance: PEMBROLIZUMAB
     Indication: METASTATIC MALIGNANT MELANOMA
     Dosage: FOR 6 WEEKS (DAYS 214?256)
     Route: 065

REACTIONS (3)
  - Malignant neoplasm progression [Unknown]
  - Vitiligo [Unknown]
  - Metastatic malignant melanoma [Unknown]
